FAERS Safety Report 8992226 (Version 4)
Quarter: 2014Q1

REPORT INFORMATION
  Report Type: Spontaneous
  Country: US (occurrence: US)
  Receive Date: 20121231
  Receipt Date: 20140130
  Transmission Date: 20141002
  Serious: Yes (Other)
  Sender: FDA-Public Use
  Company Number: US-009507513-1212USA009899

PATIENT
  Sex: Male
  Weight: 77.98 kg

DRUGS (5)
  1. PEGINTRON [Suspect]
     Indication: HEPATITIS C
     Dosage: UNK
     Route: 058
     Dates: end: 201311
  2. CLARITIN [Concomitant]
     Dosage: UNK
     Route: 048
  3. DEXEDRINE [Concomitant]
     Dosage: UNK
  4. PRILOSEC [Concomitant]
     Dosage: UNK
     Route: 048
  5. ZOLOFT [Concomitant]
     Dosage: UNK

REACTIONS (6)
  - Restless legs syndrome [Recovered/Resolved]
  - Product quality issue [Unknown]
  - Injection site hypersensitivity [Recovered/Resolved]
  - Pain in extremity [Recovered/Resolved]
  - Rash [Recovered/Resolved]
  - Chills [Recovered/Resolved]
